FAERS Safety Report 8473136-6 (Version None)
Quarter: 2012Q2

REPORT INFORMATION
  Report Type: 
  Country: None (occurrence: None)
  Receive Date: 20120627
  Receipt Date: 20120622
  Transmission Date: 20120825
  Serious: Yes (Other)
  Sender: FDA-Public Use
  Company Number: GR-PFIZER INC-2012136760

PATIENT
  Age: 72 Year
  Sex: Male

DRUGS (3)
  1. ARICEPT [Suspect]
     Dosage: 5 MG, 1X/DAY
     Route: 048
     Dates: start: 20120101
  2. CALCIORAL [Concomitant]
     Dosage: UNK
     Route: 048
  3. LIPITOR [Suspect]
     Indication: HYPERCHOLESTEROLAEMIA
     Dosage: 20 MG, 1X/DAY
     Route: 048
     Dates: end: 20120501

REACTIONS (4)
  - AMYLASE INCREASED [None]
  - PANCREATIC ENZYMES INCREASED [None]
  - HEPATIC ENZYME INCREASED [None]
  - LIPASE INCREASED [None]
